FAERS Safety Report 7433443-2 (Version None)
Quarter: 2011Q2

REPORT INFORMATION
  Report Type: 
  Country: None (occurrence: None)
  Receive Date: 20110422
  Receipt Date: 20110419
  Transmission Date: 20111010
  Serious: Yes (Life-Threatening, Hospitalization)
  Sender: FDA-Public Use
  Company Number: US-ROCHE-670489

PATIENT
  Sex: Female
  Weight: 52.5 kg

DRUGS (18)
  1. HYDROCHLOROTHIAZIDE [Concomitant]
     Route: 048
  2. CLARINEX [Concomitant]
     Dosage: FREQENCY: (PRN): AS AND WHEN REQUIRED
  3. BLINDED TOCILIZUMAB [Suspect]
     Dosage: PATIENT WAS PREVIOUSLY RECEIVING BLINDED TOCILIZUMAB.
     Route: 042
  4. TOCILIZUMAB [Suspect]
     Route: 042
     Dates: start: 20091001
  5. OSCAL [Concomitant]
  6. METHOTREXATE [Concomitant]
  7. ASCORBIC ACID [Concomitant]
  8. TOCILIZUMAB [Suspect]
     Route: 042
     Dates: start: 20090814
  9. FLUCONAZOLE [Concomitant]
  10. TOCILIZUMAB [Suspect]
     Dosage: LAST DOSE PRIOR TO SAE: 30 OCTOBER 2009
     Route: 042
     Dates: start: 20091030
  11. FOSAMAX [Concomitant]
  12. TOCILIZUMAB [Suspect]
     Dosage: LAST DOSE PRIOR TO SAE: 30 OCTOBER 2009. FORM: INJECTABLE AS PER PROTOCOL.
     Route: 042
     Dates: start: 20061106
  13. PREDNISONE [Concomitant]
     Dosage: FREQUENCY: QD
     Route: 048
  14. VITRON-C [Concomitant]
     Dosage: FREQUENCY: QD
  15. NAPROXEN [Concomitant]
  16. MULTIVITAMIN W FOLIC ACID [Concomitant]
  17. TOCILIZUMAB [Suspect]
     Route: 042
     Dates: start: 20090911
  18. ENALAPRIL [Concomitant]
     Dosage: FREQUENCY: QD
     Route: 048

REACTIONS (3)
  - ACUTE MYOCARDIAL INFARCTION [None]
  - CELLULITIS [None]
  - RENAL FAILURE ACUTE [None]
